FAERS Safety Report 25984865 (Version 2)
Quarter: 2025Q4

REPORT INFORMATION
  Report Type: Spontaneous
  Country: JP (occurrence: JP)
  Receive Date: 20251031
  Receipt Date: 20251105
  Transmission Date: 20260117
  Serious: Yes (Other)
  Sender: PFIZER
  Company Number: JP-MLMSERVICE-20251020-PI682681-00059-1

PATIENT
  Age: 54 Year
  Sex: Female

DRUGS (5)
  1. METHOTREXATE SODIUM [Suspect]
     Active Substance: METHOTREXATE SODIUM
     Indication: Rheumatoid vasculitis
     Dosage: 8 MG, WEEKLY
  2. RITUXIMAB [Suspect]
     Active Substance: RITUXIMAB
     Indication: Rheumatoid vasculitis
     Dosage: 375 MG/M2
  3. AZATHIOPRINE [Suspect]
     Active Substance: AZATHIOPRINE
     Indication: Rheumatoid vasculitis
     Dosage: 100 MG, 1X/DAY
  4. PREDNISOLONE [Suspect]
     Active Substance: PREDNISOLONE
     Indication: Rheumatoid vasculitis
     Dosage: 8 MG, 1X/DAY
  5. BUCILLAMINE [Concomitant]
     Active Substance: BUCILLAMINE
     Indication: Rheumatoid vasculitis
     Dosage: UNK

REACTIONS (3)
  - Disseminated varicella zoster virus infection [Recovered/Resolved]
  - Varicella zoster pneumonia [Recovered/Resolved]
  - Off label use [Unknown]
